FAERS Safety Report 17765679 (Version 1)
Quarter: 2020Q2

REPORT INFORMATION
  Report Type: Spontaneous
  Country: US (occurrence: US)
  Receive Date: 20200509
  Receipt Date: 20200509
  Transmission Date: 20200714
  Serious: Yes (Hospitalization)
  Sender: FDA-Public Use
  Company Number: None

PATIENT
  Sex: Female
  Weight: 90.6 kg

DRUGS (5)
  1. DAUNORUBICIN [Suspect]
     Active Substance: DAUNORUBICIN
     Dates: end: 20200427
  2. VINCRISTINE SULFATE. [Suspect]
     Active Substance: VINCRISTINE SULFATE
     Dates: end: 20200427
  3. CYTARABINE. [Suspect]
     Active Substance: CYTARABINE
     Dates: end: 20200506
  4. METHOTREXATE. [Suspect]
     Active Substance: METHOTREXATE
     Dates: end: 20200407
  5. CYCLOPHOSPHAMIDE. [Suspect]
     Active Substance: CYCLOPHOSPHAMIDE
     Dates: end: 20200504

REACTIONS (9)
  - Chills [None]
  - Tachycardia [None]
  - Diarrhoea [None]
  - Fatigue [None]
  - Pyrexia [None]
  - Asthenia [None]
  - Night sweats [None]
  - Feeling of body temperature change [None]
  - Nausea [None]

NARRATIVE: CASE EVENT DATE: 20200507
